FAERS Safety Report 4983713-2 (Version None)
Quarter: 2006Q1

REPORT INFORMATION
  Report Type: 
  Country: None (occurrence: None)
  Receive Date: 20060301
  Receipt Date: 20060103
  Transmission Date: 20060701
  Serious: No
  Sender: FDA-Public Use
  Company Number: S06-USA-00136-01

PATIENT
  Sex: Female

DRUGS (2)
  1. NAMENDA [Suspect]
  2. ARICEPT [Concomitant]

REACTIONS (1)
  - HALLUCINATION [None]
